FAERS Safety Report 7154642-3 (Version None)
Quarter: 2010Q4

REPORT INFORMATION
  Report Type: 
  Country: None (occurrence: None)
  Receive Date: 20101214
  Receipt Date: 20091125
  Transmission Date: 20110411
  Serious: No
  Sender: FDA-Public Use
  Company Number: US-AMGEN-KDL372597

PATIENT

DRUGS (4)
  1. ENBREL [Suspect]
     Indication: RHEUMATOID ARTHRITIS
     Dosage: 50 MG, QWK
     Route: 058
     Dates: start: 20041201
  2. METHOTREXATE [Concomitant]
     Dosage: 10 MG, QWK
     Route: 048
     Dates: start: 20090115
  3. FOLIC ACID [Concomitant]
     Dosage: UNK UNK, UNK
     Dates: start: 20090115
  4. ACTONEL [Concomitant]
     Dosage: UNK UNK, UNK
     Dates: start: 20090723

REACTIONS (3)
  - EXCESSIVE EXERCISE [None]
  - INJECTION SITE PAIN [None]
  - MUSCULAR WEAKNESS [None]
